FAERS Safety Report 10241638 (Version 5)
Quarter: 2017Q1

REPORT INFORMATION
  Report Type: Report from Study
  Country: US (occurrence: US)
  Receive Date: 20140617
  Receipt Date: 20170209
  Transmission Date: 20170428
  Serious: Yes (Hospitalization)
  Sender: FDA-Public Use
  Company Number: US-SA-2014SA074624

PATIENT
  Age: 65 Year
  Sex: Female
  Weight: 106.14 kg

DRUGS (6)
  1. LANTUS [Suspect]
     Active Substance: INSULIN GLARGINE
     Indication: TYPE 2 DIABETES MELLITUS
     Dosage: DOSE:180 UNIT(S)
     Route: 058
     Dates: start: 2006
  2. HYDROCHLOROTHIAZIDE. [Concomitant]
     Active Substance: HYDROCHLOROTHIAZIDE
     Indication: PRURITUS
  3. LANTUS [Suspect]
     Active Substance: INSULIN GLARGINE
     Indication: TYPE 2 DIABETES MELLITUS
     Dosage: DOSE:98 UNIT(S)
     Route: 058
     Dates: start: 20120315
  4. COUMADIN [Concomitant]
     Active Substance: WARFARIN SODIUM
  5. LANTUS [Suspect]
     Active Substance: INSULIN GLARGINE
     Indication: TYPE 2 DIABETES MELLITUS
     Dosage: DOSE:98 UNIT(S)
     Route: 058
     Dates: start: 20120315
  6. HUMALOG [Concomitant]
     Active Substance: INSULIN LISPRO

REACTIONS (12)
  - Blood glucose increased [Recovered/Resolved]
  - Nephrolithiasis [Recovered/Resolved]
  - Deep vein thrombosis [Recovered/Resolved]
  - Haemorrhage [Recovered/Resolved]
  - Product use issue [Unknown]
  - Chest pain [Unknown]
  - Dyspnoea [Unknown]
  - Cardiac failure [Recovered/Resolved]
  - Enterococcal infection [Recovered/Resolved]
  - Bundle branch block [Recovered/Resolved]
  - Back pain [Recovered/Resolved]
  - Blood pressure increased [Recovered/Resolved]

NARRATIVE: CASE EVENT DATE: 20120315
